FAERS Safety Report 4383458-6 (Version None)
Quarter: 2004Q2

REPORT INFORMATION
  Report Type: 
  Country: None (occurrence: None)
  Receive Date: 20040622
  Receipt Date: 20040622
  Transmission Date: 20050107
  Serious: No
  Sender: FDA-Public Use
  Company Number: None

PATIENT
  Sex: Male

DRUGS (1)
  1. HYDROCHLOROTHIAZIDE  HCTZ 25MG [Suspect]
     Indication: HYPERTENSION
     Dosage: 25 MG QD

REACTIONS (1)
  - WEIGHT DECREASED [None]
